FAERS Safety Report 9554479 (Version 1)
Quarter: 2013Q3

REPORT INFORMATION
  Report Type: Spontaneous
  Country: US (occurrence: US)
  Receive Date: 20130925
  Receipt Date: 20130925
  Transmission Date: 20140515
  Serious: Yes (Hospitalization)
  Sender: FDA-Public Use
  Company Number: US-B.I. PHARMACEUTICALS,INC./RIDGEFIELD-2013-BI-29473BP

PATIENT
  Sex: Male
  Weight: 83 kg

DRUGS (3)
  1. PRADAXA [Suspect]
  2. SOTALOL [Concomitant]
     Dosage: 240 MG
  3. TERAZOSIN [Concomitant]
     Dosage: 5 MG

REACTIONS (1)
  - Haemorrhage [Unknown]
